FAERS Safety Report 9219111 (Version 1)
Quarter: 2013Q2

REPORT INFORMATION
  Report Type: Spontaneous
  Country: ES (occurrence: ES)
  Receive Date: 20130409
  Receipt Date: 20130409
  Transmission Date: 20140414
  Serious: Yes (Death)
  Sender: FDA-Public Use
  Company Number: PHHY2013ES034126

PATIENT
  Age: 44 Year
  Sex: Male

DRUGS (2)
  1. AFINITOR [Suspect]
     Indication: COLON CANCER
     Dosage: UNK
     Route: 048
     Dates: start: 20120509, end: 20120701
  2. AVASTIN [Suspect]
     Indication: COLON CANCER
     Dosage: UNK
     Dates: start: 20120509, end: 20120620

REACTIONS (1)
  - Cerebral haemorrhage [Fatal]
